FAERS Safety Report 6557904-3 (Version None)
Quarter: 2010Q1

REPORT INFORMATION
  Report Type: 
  Country: None (occurrence: None)
  Receive Date: 20100129
  Receipt Date: 20100120
  Transmission Date: 20100710
  Serious: Yes (Hospitalization)
  Sender: FDA-Public Use
  Company Number: JP-ROCHE-682202

PATIENT
  Age: 59 Year
  Sex: Female

DRUGS (3)
  1. XELODA [Suspect]
     Indication: INFLAMMATORY CARCINOMA OF THE BREAST
     Dosage: DOSE REDUCED
     Route: 048
  2. XELODA [Suspect]
     Route: 048
  3. TYKERB [Suspect]
     Indication: DRUG USE FOR UNKNOWN INDICATION
     Route: 048

REACTIONS (1)
  - MUCOUS MEMBRANE DISORDER [None]
